FAERS Safety Report 20363605 (Version 1)
Quarter: 2022Q1

REPORT INFORMATION
  Report Type: Report from Study
  Country: CN (occurrence: CN)
  Receive Date: 20220121
  Receipt Date: 20220121
  Transmission Date: 20220424
  Serious: Yes (Hospitalization)
  Sender: FDA-Public Use
  Company Number: CN-PFIZER INC-202200079320

PATIENT
  Age: 50 Year
  Sex: Male

DRUGS (9)
  1. PACLITAXEL [Suspect]
     Active Substance: PACLITAXEL
     Indication: Non-small cell lung cancer
     Dosage: 200 MG/M2, CYCLIC (Q3WK)
     Route: 042
     Dates: start: 20210929, end: 20210929
  2. PACLITAXEL [Suspect]
     Active Substance: PACLITAXEL
     Dosage: 200 MG/M2, CYCLIC (Q3WK)
     Route: 042
     Dates: start: 20211022, end: 20211022
  3. PACLITAXEL [Suspect]
     Active Substance: PACLITAXEL
     Dosage: 200 MG/M2, CYCLIC (Q3WK)
     Route: 042
     Dates: start: 20211112, end: 20211112
  4. CARBOPLATIN [Suspect]
     Active Substance: CARBOPLATIN
     Indication: Non-small cell lung cancer
     Dosage: 6 AUC, CYCLIC (EVERY THREE WEEKS)
     Route: 042
     Dates: start: 20210929, end: 20210929
  5. CARBOPLATIN [Suspect]
     Active Substance: CARBOPLATIN
     Dosage: 6 AUC, CYCLIC (EVERY THREE WEEKS)
     Route: 042
     Dates: start: 20211022, end: 20211022
  6. CARBOPLATIN [Suspect]
     Active Substance: CARBOPLATIN
     Dosage: 6 AUC, CYCLIC (EVERY THREE WEEKS)
     Route: 042
     Dates: start: 20211112, end: 20211112
  7. INVESTIGATIONAL PRODUCT [Suspect]
     Active Substance: INVESTIGATIONAL PRODUCT
     Indication: Non-small cell lung cancer
     Dosage: 1500 MG, CYCLIC (Q3WK)
     Route: 042
     Dates: start: 20210929, end: 20210929
  8. INVESTIGATIONAL PRODUCT [Suspect]
     Active Substance: INVESTIGATIONAL PRODUCT
     Dosage: 1500 MG, CYCLIC (Q3WK)
     Route: 042
     Dates: start: 20211022, end: 20211022
  9. INVESTIGATIONAL PRODUCT [Suspect]
     Active Substance: INVESTIGATIONAL PRODUCT
     Dosage: 1500 MG, CYCLIC (Q3WK)
     Route: 042
     Dates: start: 20211112, end: 20211112

REACTIONS (1)
  - Drug-induced liver injury [Recovered/Resolved]

NARRATIVE: CASE EVENT DATE: 20211003
